FAERS Safety Report 9815383 (Version 1)
Quarter: 2014Q1

REPORT INFORMATION
  Report Type: Spontaneous
  Country: GB (occurrence: GB)
  Receive Date: 20140114
  Receipt Date: 20140114
  Transmission Date: 20141002
  Serious: Yes (Other)
  Sender: FDA-Public Use
  Company Number: GB-UCBSA-108213

PATIENT
  Sex: Female

DRUGS (1)
  1. KEPPRA [Suspect]
     Dates: start: 201312

REACTIONS (1)
  - Thrombocytopenia [Unknown]
